FAERS Safety Report 23067703 (Version 1)
Quarter: 2023Q4

REPORT INFORMATION
  Report Type: Spontaneous
  Country: US (occurrence: US)
  Receive Date: 20231016
  Receipt Date: 20231016
  Transmission Date: 20240110
  Serious: Yes (Other)
  Sender: FDA-Public Use
  Company Number: US-SA-SAC20231011001834

PATIENT
  Sex: Male

DRUGS (2)
  1. FLOMAX [Suspect]
     Active Substance: TAMSULOSIN HYDROCHLORIDE
     Dosage: 0.4 MG, QD
  2. FINASTERIDE [Suspect]
     Active Substance: FINASTERIDE
     Dosage: 5 MG, QD

REACTIONS (6)
  - Hallucination [Unknown]
  - Pain [Unknown]
  - Hypoacusis [Unknown]
  - Breast tenderness [Unknown]
  - Fatigue [Unknown]
  - Visual impairment [Unknown]
